FAERS Safety Report 4948336-X (Version None)
Quarter: 2006Q1

REPORT INFORMATION
  Report Type: 
  Country: None (occurrence: None)
  Receive Date: 20060127
  Receipt Date: 20050217
  Transmission Date: 20060701
  Serious: Yes (Hospitalization)
  Sender: FDA-Public Use
  Company Number: 05-02-0236

PATIENT
  Age: 58 Year
  Sex: Female

DRUGS (2)
  1. CLOZAPINE [Suspect]
     Indication: PSYCHOTIC DISORDER
     Dosage: 200-300MG QD, ORAL
     Route: 048
     Dates: start: 20040401
  2. CLOZAPINE [Suspect]
     Indication: SCHIZOAFFECTIVE DISORDER
     Dosage: 200-300MG QD, ORAL
     Route: 048
     Dates: start: 20040401

REACTIONS (2)
  - DEPRESSION [None]
  - PSYCHOTIC DISORDER [None]
